FAERS Safety Report 25040399 (Version 2)
Quarter: 2025Q1

REPORT INFORMATION
  Report Type: Spontaneous
  Country: US (occurrence: FR)
  Receive Date: 20250305
  Receipt Date: 20250320
  Transmission Date: 20250409
  Serious: Yes (Hospitalization)
  Sender: AUROBINDO
  Company Number: US-AUROBINDO-AUR-APL-2025-010487

PATIENT
  Age: 40 Year
  Sex: Female

DRUGS (7)
  1. TRANEXAMIC ACID [Suspect]
     Active Substance: TRANEXAMIC ACID
     Indication: Epistaxis
     Route: 048
     Dates: start: 201911
  2. HYDROXYUREA [Suspect]
     Active Substance: HYDROXYUREA
     Indication: Porphyria non-acute
     Route: 048
  3. URSODIOL [Suspect]
     Active Substance: URSODIOL
     Indication: Porphyria non-acute
     Dosage: 500 MILLIGRAM, TWO TIMES A DAY
     Route: 048
  4. DEFEROXAMINE [Concomitant]
     Active Substance: DEFEROXAMINE MESYLATE
     Indication: Chelation therapy
     Route: 042
  5. DEFEROXAMINE [Concomitant]
     Active Substance: DEFEROXAMINE MESYLATE
     Dosage: 20 MILLIGRAM/KILOGRAM, ONCE A DAY
     Route: 065
  6. IRON [Concomitant]
     Active Substance: IRON
     Indication: Microcytic anaemia
     Route: 048
  7. IRON [Concomitant]
     Active Substance: IRON
     Indication: Thrombocytopenia

REACTIONS (4)
  - Epistaxis [Unknown]
  - Melaena [Unknown]
  - Anaemia [Unknown]
  - Drug ineffective [Unknown]

NARRATIVE: CASE EVENT DATE: 20190701
